FAERS Safety Report 21572333 (Version 3)
Quarter: 2022Q4

REPORT INFORMATION
  Report Type: Report from Study
  Country: IL (occurrence: IL)
  Receive Date: 20221109
  Receipt Date: 20221214
  Transmission Date: 20230113
  Serious: Yes (Hospitalization)
  Sender: FDA-Public Use
  Company Number: IL-JNJFOC-20221018604

PATIENT
  Age: 38 Year
  Sex: Male

DRUGS (3)
  1. ESKETAMINE [Suspect]
     Active Substance: ESKETAMINE
     Indication: Depression
     Dosage: 28 MG(1 DEVICES), TOTAL 1 DOSES
     Dates: start: 20220731, end: 20220731
  2. ESKETAMINE [Suspect]
     Active Substance: ESKETAMINE
     Dosage: 56 (2 DEVICES), TOTAL 1 DOSES
     Dates: start: 20220803, end: 20220803
  3. ESKETAMINE [Suspect]
     Active Substance: ESKETAMINE
     Dosage: 84 MG, TOTAL 12 DOSES
     Dates: start: 20220807, end: 20220914

REACTIONS (2)
  - Drug ineffective [Not Recovered/Not Resolved]
  - Panic attack [Not Recovered/Not Resolved]

NARRATIVE: CASE EVENT DATE: 20220915
